FAERS Safety Report 6624092-4 (Version None)
Quarter: 2010Q1

REPORT INFORMATION
  Report Type: 
  Country: None (occurrence: None)
  Receive Date: 20100310
  Receipt Date: 20100226
  Transmission Date: 20100710
  Serious: Yes (Life-Threatening)
  Sender: FDA-Public Use
  Company Number: FR-PFIZER INC-2010024976

PATIENT
  Age: 51 Year
  Sex: Female

DRUGS (1)
  1. DALACINE [Suspect]
     Indication: ANAESTHESIA PROCEDURE
     Dosage: 10 ML
     Route: 042
     Dates: start: 20100212, end: 20100212

REACTIONS (2)
  - ANAPHYLACTIC SHOCK [None]
  - MYOCARDIAL INFARCTION [None]
